FAERS Safety Report 4686589-6 (Version None)
Quarter: 2005Q2

REPORT INFORMATION
  Report Type: 
  Country: None (occurrence: None)
  Receive Date: 20050606
  Receipt Date: 20050601
  Transmission Date: 20051028
  Serious: Yes (Other)
  Sender: FDA-Public Use
  Company Number: S05-USA-01921-01

PATIENT
  Age: 80 Year
  Sex: Female

DRUGS (3)
  1. NAMENDA [Suspect]
     Indication: DEMENTIA ALZHEIMER'S TYPE
     Dosage: 5 MG BID PO
     Route: 048
     Dates: start: 20050401, end: 20050408
  2. NAMENDA [Suspect]
     Indication: DEMENTIA ALZHEIMER'S TYPE
     Dosage: 5 MG QD PO
     Route: 048
     Dates: start: 20050325, end: 20050331
  3. PRAVACHOL [Suspect]
     Indication: HYPERCHOLESTEROLAEMIA
     Dates: end: 20050401

REACTIONS (1)
  - STEVENS-JOHNSON SYNDROME [None]
